FAERS Safety Report 25356422 (Version 2)
Quarter: 2025Q3

REPORT INFORMATION
  Report Type: Report from Study
  Country: US (occurrence: US)
  Receive Date: 20250526
  Receipt Date: 20250721
  Transmission Date: 20251021
  Serious: Yes (Hospitalization)
  Sender: BIOGEN
  Company Number: US-BIOGEN-2025BI01311688

PATIENT
  Age: 35 Year
  Sex: Female

DRUGS (2)
  1. ZURZUVAE [Suspect]
     Active Substance: ZURANOLONE
     Indication: Perinatal depression
     Dosage: `FOR 14 DAYS
     Route: 050
     Dates: start: 20250512, end: 20250525
  2. ZURZUVAE [Suspect]
     Active Substance: ZURANOLONE
     Route: 050
     Dates: end: 20250525

REACTIONS (10)
  - Anger [Recovered/Resolved]
  - Logorrhoea [Recovered/Resolved]
  - Mania [Unknown]
  - Mood swings [Unknown]
  - Irritability [Unknown]
  - Agitation [Unknown]
  - Cognitive disorder [Unknown]
  - Fatigue [Unknown]
  - Dizziness [Unknown]
  - Asthenia [Unknown]

NARRATIVE: CASE EVENT DATE: 20250518
